FAERS Safety Report 7049329-1 (Version None)
Quarter: 2010Q4

REPORT INFORMATION
  Report Type: 
  Country: None (occurrence: None)
  Receive Date: 20101018
  Receipt Date: 20100713
  Transmission Date: 20110411
  Serious: No
  Sender: FDA-Public Use
  Company Number: A0859010A

PATIENT
  Age: 74 Year
  Sex: Male
  Weight: 84.1 kg

DRUGS (16)
  1. CEFTIN [Suspect]
     Dosage: 500MG TWICE PER DAY
     Route: 065
     Dates: start: 20100305
  2. LIPITOR [Suspect]
     Indication: CORONARY ARTERY DISEASE
     Dosage: 20MG PER DAY
     Route: 065
     Dates: start: 19930101, end: 20100316
  3. TOPROL-XL [Concomitant]
  4. GLUCOPHAGE [Concomitant]
  5. COZAAR [Concomitant]
  6. FLOMAX [Concomitant]
  7. LANOXIN [Concomitant]
  8. NEXIUM [Concomitant]
  9. TRILIPIX [Concomitant]
  10. WARFARIN [Concomitant]
  11. GABAPENTIN [Concomitant]
  12. JANUVIA [Concomitant]
  13. NORVASC [Concomitant]
  14. ANDROGEL [Concomitant]
  15. PREDNISONE [Concomitant]
  16. NASONEX [Concomitant]

REACTIONS (3)
  - DRUG INTERACTION [None]
  - GAIT DISTURBANCE [None]
  - PAIN IN EXTREMITY [None]
